FAERS Safety Report 13759257 (Version 1)
Quarter: 2017Q3

REPORT INFORMATION
  Report Type: Spontaneous
  Country: US (occurrence: US)
  Receive Date: 20170717
  Receipt Date: 20170717
  Transmission Date: 20171127
  Serious: Yes (Other)
  Sender: FDA-Public Use
  Company Number: None

PATIENT
  Age: 70 Year
  Sex: Female
  Weight: 76.5 kg

DRUGS (6)
  1. VITAMIN C [Concomitant]
     Active Substance: ASCORBIC ACID
  2. OMEGA-3 ACIDS [Concomitant]
     Active Substance: OMEGA-3 FATTY ACIDS
  3. PERMETHRIN CREAM 5% PERRIGO [Suspect]
     Active Substance: PERMETHRIN
     Indication: ACARODERMATITIS
     Dosage: ?          OTHER FREQUENCY:ONE TIME DOSE;?
     Route: 061
     Dates: start: 20151201, end: 20151201
  4. VITAMIN D [Concomitant]
     Active Substance: CHOLECALCIFEROL
  5. GMA [Concomitant]
  6. LOW DOSE ASPIRIN [Concomitant]
     Active Substance: ASPIRIN

REACTIONS (1)
  - Scar [None]

NARRATIVE: CASE EVENT DATE: 20151201
